FAERS Safety Report 26054788 (Version 1)
Quarter: 2025Q4

REPORT INFORMATION
  Report Type: Spontaneous
  Country: US (occurrence: US)
  Receive Date: 20251117
  Receipt Date: 20251117
  Transmission Date: 20260118
  Serious: No
  Sender: BAYER HEALTHCARE LLC
  Company Number: US-BAYER-2025A151995

PATIENT
  Age: 93 Year
  Sex: Female

DRUGS (1)
  1. MIRALAX [Suspect]
     Active Substance: POLYETHYLENE GLYCOL 3350
     Dosage: 1 DF, TABLESPOON
     Route: 048
     Dates: start: 202511, end: 20251114

REACTIONS (1)
  - Therapeutic product effect increased [None]

NARRATIVE: CASE EVENT DATE: 20251101
